FAERS Safety Report 17567394 (Version 1)
Quarter: 2020Q1

REPORT INFORMATION
  Report Type: Spontaneous
  Country: US (occurrence: US)
  Receive Date: 20200320
  Receipt Date: 20200320
  Transmission Date: 20200409
  Serious: No
  Sender: FDA-Public Use
  Company Number: US-VERTEX PHARMACEUTICALS-2020-005516

PATIENT
  Age: 25 Year
  Sex: Female
  Weight: 57 kg

DRUGS (11)
  1. SYMDEKO [Suspect]
     Active Substance: IVACAFTOR\TEZACAFTOR
     Indication: CYSTIC FIBROSIS
     Dosage: 1 TAB(100MG TEZACAFTOR/150MG IVACAFTOR)AM; 1 TAB(150MG IVACAFTOR)PM
     Route: 048
     Dates: start: 20190201
  2. URSODIOL. [Concomitant]
     Active Substance: URSODIOL
     Dosage: 250 MG TAB
     Route: 048
  3. VITAMIN A + E [Concomitant]
     Dosage: OIL
  4. FIBER LAXATIVE [Concomitant]
     Active Substance: CALCIUM POLYCARBOPHIL
     Dosage: 625 MG TAB
     Route: 048
  5. ALBUTEROL SULFATE. [Concomitant]
     Active Substance: ALBUTEROL SULFATE
     Dosage: UNK
  6. PRENATAL 1+1 FE [Concomitant]
     Dosage: TAB
     Route: 048
  7. ZENPEP [Concomitant]
     Active Substance: PANCRELIPASE AMYLASE\PANCRELIPASE LIPASE\PANCRELIPASE PROTEASE
     Dosage: CAPSULE DR
     Route: 048
  8. SENNA TABS [Concomitant]
     Active Substance: SENNOSIDES A AND B
     Dosage: 17.2 MG TABLET
     Route: 048
  9. MIRALAX [Concomitant]
     Active Substance: POLYETHYLENE GLYCOL 3350
     Dosage: POWDER
  10. HYPERSAL [Concomitant]
     Active Substance: SODIUM CHLORIDE
     Dosage: 3.5%
     Route: 055
  11. TRAZODONE [Concomitant]
     Active Substance: TRAZODONE HYDROCHLORIDE
     Dosage: 100MG TAB
     Route: 048

REACTIONS (1)
  - Emergency care [Unknown]

NARRATIVE: CASE EVENT DATE: 202003
